FAERS Safety Report 4536483-6 (Version None)
Quarter: 2004Q4

REPORT INFORMATION
  Report Type: 
  Country: None (occurrence: None)
  Receive Date: 20041220
  Receipt Date: 20041213
  Transmission Date: 20050328
  Serious: Yes (Death, Hospitalization)
  Sender: FDA-Public Use
  Company Number: PERC20040075

PATIENT
  Age: 43 Year
  Sex: Male

DRUGS (7)
  1. PERCOCET [Suspect]
     Indication: ARTHRALGIA
     Dosage: PO
     Route: 048
     Dates: start: 20030101, end: 20030101
  2. PERCOCET [Suspect]
     Indication: PAIN IN EXTREMITY
     Dosage: PO
     Route: 048
     Dates: start: 20030101, end: 20030101
  3. OXYCODONE HCL [Suspect]
     Indication: ARTHRALGIA
     Dosage: PO
     Route: 048
     Dates: start: 20030101, end: 20030101
  4. OXYCODONE HCL [Suspect]
     Indication: PAIN IN EXTREMITY
     Dosage: PO
     Route: 048
     Dates: start: 20030101, end: 20030101
  5. ETHANOL [Suspect]
     Dosage: PO
     Route: 048
     Dates: start: 20030101, end: 20030101
  6. ACETAMINOPHEN [Suspect]
     Indication: ARTHRALGIA
     Dates: start: 20030101, end: 20030101
  7. ACETAMINOPHEN [Suspect]
     Indication: PAIN IN EXTREMITY
     Dates: start: 20030101, end: 20030101

REACTIONS (13)
  - ALCOHOL USE [None]
  - BLOOD BICARBONATE DECREASED [None]
  - BLOOD GLUCOSE DECREASED [None]
  - COAGULATION FACTOR V LEVEL DECREASED [None]
  - COAGULATION FACTOR VIII LEVEL DECREASED [None]
  - COMA [None]
  - HEART RATE INCREASED [None]
  - HEPATIC ENCEPHALOPATHY [None]
  - HEPATIC FAILURE [None]
  - HEPATITIS C ANTIBODY POSITIVE [None]
  - HIV ANTIBODY POSITIVE [None]
  - HYPOTENSION [None]
  - MULTIPLE DRUG OVERDOSE [None]
